FAERS Safety Report 4662036-5 (Version None)
Quarter: 2005Q2

REPORT INFORMATION
  Report Type: 
  Country: None (occurrence: None)
  Receive Date: 20050512
  Receipt Date: 20050512
  Transmission Date: 20051028
  Serious: Yes (Other)
  Sender: FDA-Public Use
  Company Number: None

PATIENT
  Sex: Female
  Weight: 50.8029 kg

DRUGS (5)
  1. DIFFERIN [Suspect]
     Indication: ACNE
     Dosage: ONCE DAILY, TOPICALLY
     Route: 061
  2. BENZACLIN GEL [Concomitant]
  3. VITAMIN B COMPLEX CAP [Concomitant]
  4. CALCIUM GLUCONATE [Concomitant]
  5. FISH OIL [Concomitant]

REACTIONS (1)
  - ALOPECIA [None]
